FAERS Safety Report 5018396-9 (Version None)
Quarter: 2006Q2

REPORT INFORMATION
  Report Type: 
  Country: None (occurrence: None)
  Receive Date: 20060530
  Receipt Date: 20060520
  Transmission Date: 20061013
  Serious: No
  Sender: FDA-Public Use
  Company Number: 218392

PATIENT
  Age: 13 Year
  Sex: Female

DRUGS (5)
  1. NUTROPIN AQ [Suspect]
     Indication: GROWTH HORMONE DEFICIENCY
     Dosage: 2.5 MG,QD, SUBCUTANEOUS
     Route: 058
     Dates: start: 20040817
  2. ADDERALL (AMPHETAMINE ASPARTATE, AMPHETAMINE SULFATE, DEXTROAMPHETAMIN [Concomitant]
  3. PROPRANOLOL (PROPRANOLOL HYDROCHLORIDE) [Concomitant]
  4. MULTIVITAMIN (MULTIVITAMINS NOS) [Concomitant]
  5. NASONEX [Concomitant]

REACTIONS (1)
  - SCOLIOSIS [None]
